FAERS Safety Report 7694394-1 (Version None)
Quarter: 2011Q3

REPORT INFORMATION
  Report Type: 
  Country: None (occurrence: None)
  Receive Date: 20110819
  Receipt Date: 20110818
  Transmission Date: 20111222
  Serious: Yes (Hospitalization)
  Sender: FDA-Public Use
  Company Number: JP-BRISTOL-MYERS SQUIBB COMPANY-15956212

PATIENT
  Age: 42 Year
  Sex: Female
  Weight: 43 kg

DRUGS (11)
  1. ORENCIA [Suspect]
     Indication: RHEUMATOID ARTHRITIS
     Route: 041
     Dates: start: 20101210
  2. LANSOPRAZOLE [Concomitant]
     Indication: PROPHYLAXIS AGAINST GASTROINTESTINAL ULCER
     Dosage: TABS
  3. PROMAC [Concomitant]
     Indication: PROPHYLAXIS AGAINST GASTROINTESTINAL ULCER
     Dosage: TABS
  4. LOXONIN [Concomitant]
     Indication: RHEUMATOID ARTHRITIS
  5. ALFACALCIDOL [Concomitant]
  6. DEXAMETHASONE [Suspect]
     Dosage: START- 3 MONTHS BEFORE ORENCIA
     Route: 048
  7. DICLOFENAC SODIUM [Concomitant]
     Indication: RHEUMATOID ARTHRITIS
     Dosage: CAPS
  8. ETANERCEPT [Concomitant]
     Dates: end: 20101008
  9. PREDNISONE [Concomitant]
     Indication: RHEUMATOID ARTHRITIS
     Dosage: START- 2 MONTHS BEFORE ORENCIA ADMINISTRATION
     Route: 048
  10. CELECOXIB [Concomitant]
     Indication: RHEUMATOID ARTHRITIS
  11. MUCOSTA [Concomitant]
     Dosage: MUCOSTA TABS

REACTIONS (2)
  - DIZZINESS [None]
  - ALTERED STATE OF CONSCIOUSNESS [None]
